FAERS Safety Report 4596215-2 (Version None)
Quarter: 2005Q1

REPORT INFORMATION
  Report Type: 
  Country: None (occurrence: None)
  Receive Date: 20050225
  Receipt Date: 20050211
  Transmission Date: 20050727
  Serious: Yes (Hospitalization)
  Sender: FDA-Public Use
  Company Number: 2004AP05968

PATIENT
  Age: 75 Year
  Sex: Male
  Weight: 60 kg

DRUGS (9)
  1. MEROPEN [Suspect]
     Indication: RESPIRATORY TRACT INFECTION
     Dosage: 500 MG BID IV
     Route: 042
     Dates: start: 20040910, end: 20040916
  2. THEOLONG [Concomitant]
  3. BASEN [Concomitant]
  4. ONON [Concomitant]
  5. TAKEPRON [Concomitant]
  6. FLUTICASONE PROPIONATE [Concomitant]
  7. RULID [Concomitant]
  8. PYRINAZIN [Concomitant]
  9. MUCODYNE [Concomitant]

REACTIONS (8)
  - ABNORMAL BEHAVIOUR [None]
  - CHRONIC RESPIRATORY FAILURE [None]
  - INCOHERENT [None]
  - INFLAMMATION [None]
  - INTERSTITIAL LUNG DISEASE [None]
  - METHICILLIN-RESISTANT STAPHYLOCOCCAL AUREUS TEST POSITIVE [None]
  - SPUTUM CULTURE POSITIVE [None]
  - THERAPY NON-RESPONDER [None]
